FAERS Safety Report 10545326 (Version 1)
Quarter: 2014Q4

REPORT INFORMATION
  Report Type: Spontaneous
  Country: US (occurrence: US)
  Receive Date: 20141027
  Receipt Date: 20141027
  Transmission Date: 20150529
  Serious: Yes (Other)
  Sender: FDA-Public Use
  Company Number: US-TEVA-517503USA

PATIENT
  Sex: Female

DRUGS (1)
  1. COPAXONE [Suspect]
     Active Substance: GLATIRAMER ACETATE
     Dosage: DOSE AND FREQUENCY NOT PROVIDED

REACTIONS (10)
  - Drug interaction [Unknown]
  - Myocardial infarction [Unknown]
  - Headache [Unknown]
  - Fear [Unknown]
  - Chest pain [Unknown]
  - Blindness [Unknown]
  - Feeling hot [Unknown]
  - Immediate post-injection reaction [Unknown]
  - Paraesthesia [Unknown]
  - Dyspnoea [Unknown]
